FAERS Safety Report 9769715 (Version 2)
Quarter: 2014Q1

REPORT INFORMATION
  Report Type: Spontaneous
  Country: RU (occurrence: RU)
  Receive Date: 20131218
  Receipt Date: 20140206
  Transmission Date: 20141002
  Serious: Yes (Hospitalization)
  Sender: FDA-Public Use
  Company Number: RU-NOVOPROD-395138

PATIENT
  Age: 51 Year
  Sex: Female
  Weight: 65 kg

DRUGS (2)
  1. PROTAPHANE HM PENFILL [Suspect]
     Indication: TYPE 2 DIABETES MELLITUS
     Dosage: 26 U, QD (4-0-12)
     Route: 058
     Dates: start: 201303
  2. ACTRAPID HM [Suspect]
     Indication: TYPE 2 DIABETES MELLITUS
     Dosage: 18 IU, QD ( 6-6-6)
     Route: 058
     Dates: start: 201303

REACTIONS (1)
  - Pneumonia [Recovered/Resolved]
